FAERS Safety Report 5492375-X (Version None)
Quarter: 2007Q4

REPORT INFORMATION
  Report Type: 
  Country: None (occurrence: None)
  Receive Date: 20071015
  Receipt Date: 20070719
  Transmission Date: 20080405
  Serious: No
  Sender: FDA-Public Use
  Company Number: 2007SP002584

PATIENT
  Age: 37 Year
  Sex: Female
  Weight: 192.7787 kg

DRUGS (3)
  1. LUNESTA [Suspect]
     Indication: INSOMNIA
     Dosage: 3 MG; HS; ORAL;  6 MG; ORAL
     Route: 048
     Dates: start: 20050301, end: 20050801
  2. AMBIEN [Suspect]
     Dosage: 10 MG; HS; ORAL;  20 MG; HS; ORAL
     Route: 048
  3. TYLENOL [Suspect]
     Indication: INSOMNIA
     Dosage: ORAL
     Route: 048

REACTIONS (2)
  - INSOMNIA [None]
  - WEIGHT DECREASED [None]
